FAERS Safety Report 6237677-4 (Version None)
Quarter: 2009Q2

REPORT INFORMATION
  Report Type: 
  Country: None (occurrence: None)
  Receive Date: 20090617
  Receipt Date: 20090602
  Transmission Date: 20091009
  Serious: Yes (Hospitalization, Other)
  Sender: FDA-Public Use
  Company Number: APP200900318

PATIENT
  Age: 69 Year
  Sex: Female
  Weight: 97.977 kg

DRUGS (14)
  1. XYLOCAINE W/ EPINEPHRENE [Suspect]
     Indication: ANAESTHESIA PROCEDURE
     Dates: start: 20090505, end: 20090505
  2. ULORIC [Suspect]
     Indication: GOUT
     Dosage: 80 MG, 1 IN 1 D, ORAL
     Route: 048
     Dates: start: 20090312, end: 20090505
  3. COLCHICINE (COLCHICINE) [Concomitant]
  4. ASPIRIN [Concomitant]
  5. NEXIUM [Concomitant]
  6. SOTALOL HCL [Concomitant]
  7. FUROSEMIDE [Concomitant]
  8. VYTORIN [Concomitant]
  9. FOSAMAX [Concomitant]
  10. MULTIVITAMIN [Concomitant]
  11. ASCORBIC ACID [Concomitant]
  12. CALCIUM (CALCIUM) [Concomitant]
  13. VITAMIN D [Concomitant]
  14. FISH OIL (FISH OIL) [Concomitant]

REACTIONS (2)
  - CHEST PAIN [None]
  - MYOCARDIAL INFARCTION [None]
